FAERS Safety Report 10025903 (Version 2)
Quarter: 2014Q2

REPORT INFORMATION
  Report Type: Report from Study
  Country: US (occurrence: US)
  Receive Date: 20140320
  Receipt Date: 20140404
  Transmission Date: 20141212
  Serious: Yes (Death, Other)
  Sender: FDA-Public Use
  Company Number: US-ACTELION-A-US2014-96073

PATIENT
  Age: 49 Year
  Sex: Male

DRUGS (1)
  1. TRACLEER [Suspect]
     Indication: PULMONARY ARTERIAL HYPERTENSION
     Dosage: UNK
     Route: 048
     Dates: end: 20140309

REACTIONS (4)
  - Eisenmenger^s syndrome [Fatal]
  - Hypoxia [Fatal]
  - Pulmonary arterial hypertension [Fatal]
  - Cardiac failure congestive [Fatal]
